FAERS Safety Report 9730775 (Version 5)
Quarter: 2014Q1

REPORT INFORMATION
  Report Type: Spontaneous
  Country: US (occurrence: US)
  Receive Date: 20131202
  Receipt Date: 20140307
  Transmission Date: 20141002
  Serious: Yes (Other)
  Sender: FDA-Public Use
  Company Number: US-RB-060272-13

PATIENT
  Age: 68 Year
  Sex: Male

DRUGS (7)
  1. SUBOXONE FILM [Suspect]
     Indication: DRUG DEPENDENCE
     Dosage: SUBOXONE FILM
     Route: 060
     Dates: start: 201206, end: 20131211
  2. SUBOXONE FILM [Suspect]
     Dosage: SUBOXONE FILM
     Route: 060
     Dates: start: 20131213
  3. NEURONTIN [Concomitant]
     Indication: NERVE INJURY
     Dosage: DOSING DETAILS UNKNOWN
     Route: 048
  4. TRAZODONE [Concomitant]
     Indication: PRODUCT USED FOR UNKNOWN INDICATION
     Dosage: STARTED IN EARLY 1990^S; DOSING DETAILS UNKNOWN
     Route: 048
  5. CELEXA [Concomitant]
     Indication: PRODUCT USED FOR UNKNOWN INDICATION
     Dosage: STARTED IN EARLY 1990^S; DOSING DETAILS UNKNOWN
     Route: 048
  6. METOPROLOL TARPA [Concomitant]
     Indication: HYPERTENSION
     Dosage: STARTED IN EARLY 1990^S
     Route: 048
  7. NICOTINE [Concomitant]
     Indication: PRODUCT USED FOR UNKNOWN INDICATION
     Dosage: SMOKES 1/2 PACK OF CIGARETTES A DAY
     Route: 065

REACTIONS (7)
  - Peripheral arterial occlusive disease [Not Recovered/Not Resolved]
  - Arterial occlusive disease [Recovered/Resolved]
  - Oedema peripheral [Recovered/Resolved]
  - Loose tooth [Not Recovered/Not Resolved]
  - Tooth fracture [Not Recovered/Not Resolved]
  - Dental caries [Not Recovered/Not Resolved]
  - Tooth injury [Not Recovered/Not Resolved]
